FAERS Safety Report 7897616-7 (Version None)
Quarter: 2011Q4

REPORT INFORMATION
  Report Type: 
  Country: None (occurrence: None)
  Receive Date: 20111107
  Receipt Date: 20100106
  Transmission Date: 20120403
  Serious: No
  Sender: FDA-Public Use
  Company Number: US-BAYER-201010564NA

PATIENT
  Age: 50 Year
  Sex: Female

DRUGS (2)
  1. CLIMARA [Suspect]
     Dosage: 0.075 MG, QD
  2. CLIMARA [Suspect]
     Indication: MENOPAUSE
     Dosage: 0.075 MG, QD

REACTIONS (2)
  - PRODUCT ADHESION ISSUE [None]
  - ACNE [None]
